FAERS Safety Report 24334840 (Version 1)
Quarter: 2024Q3

REPORT INFORMATION
  Report Type: Spontaneous
  Country: FR (occurrence: FR)
  Receive Date: 20240918
  Receipt Date: 20240918
  Transmission Date: 20241017
  Serious: Yes (Hospitalization)
  Sender: TEVA
  Company Number: None

PATIENT
  Age: 49 Year
  Sex: Male

DRUGS (2)
  1. AMOXICILLIN [Suspect]
     Active Substance: AMOXICILLIN
     Indication: Sinusitis
     Dosage: TIME INTERVAL: TOTAL
     Route: 048
     Dates: start: 20240817, end: 20240817
  2. PREDNISOLONE [Suspect]
     Active Substance: PREDNISOLONE
     Indication: Sinusitis
     Dosage: TIME INTERVAL: TOTAL: PREDNISOLONE ACETATE
     Route: 048
     Dates: start: 20240817, end: 20240817

REACTIONS (1)
  - Anaphylactic shock [Recovered/Resolved]

NARRATIVE: CASE EVENT DATE: 20240817
